FAERS Safety Report 9774542 (Version 2)
Quarter: 2014Q2

REPORT INFORMATION
  Report Type: Spontaneous
  Country: US (occurrence: US)
  Receive Date: 20131220
  Receipt Date: 20140509
  Transmission Date: 20141212
  Serious: Yes (Hospitalization, Other)
  Sender: FDA-Public Use
  Company Number: US-BAYER-2013-154065

PATIENT
  Age: 46 Year
  Sex: Female
  Weight: 74.38 kg

DRUGS (4)
  1. YASMIN [Suspect]
     Indication: CONTRACEPTION
  2. OCELLA [Suspect]
  3. KEFLEX [Concomitant]
  4. PEPCID [Concomitant]

REACTIONS (6)
  - Deep vein thrombosis [None]
  - Cholecystectomy [None]
  - Thrombophlebitis superficial [None]
  - Pain [None]
  - Injury [None]
  - Pain [None]
